FAERS Safety Report 8918837 (Version 1)
Quarter: 2012Q4

REPORT INFORMATION
  Report Type: Spontaneous
  Country: US (occurrence: None)
  Receive Date: 20121115
  Receipt Date: 20121115
  Transmission Date: 20130627
  Serious: Yes (Other)
  Sender: FDA-Public Use
  Company Number: None

PATIENT
  Age: 37 Year
  Sex: Female
  Weight: 61.69 kg

DRUGS (1)
  1. GILENYA [Suspect]

REACTIONS (3)
  - Neutropenia [None]
  - Lymphocyte count decreased [None]
  - Treatment noncompliance [None]
